FAERS Safety Report 11665694 (Version 1)
Quarter: 2015Q4

REPORT INFORMATION
  Report Type: Spontaneous
  Country: US (occurrence: US)
  Receive Date: 20151027
  Receipt Date: 20151027
  Transmission Date: 20160304
  Serious: No
  Sender: FDA-Public Use
  Company Number: US-ELI_LILLY_AND_COMPANY-US201001000390

PATIENT
  Sex: Female

DRUGS (3)
  1. COUMARIN [Concomitant]
     Active Substance: COUMARIN
     Indication: BLOOD DISORDER
  2. FORTEO [Suspect]
     Active Substance: TERIPARATIDE
     Dosage: UNK, UNKNOWN
  3. FORTEO [Suspect]
     Active Substance: TERIPARATIDE

REACTIONS (4)
  - Injection site pain [Recovered/Resolved]
  - Contusion [Unknown]
  - Wrong technique in product usage process [Unknown]
  - Injection site bruising [Recovered/Resolved]

NARRATIVE: CASE EVENT DATE: 2009
